APPROVED DRUG PRODUCT: MECLIZINE HYDROCHLORIDE
Active Ingredient: MECLIZINE HYDROCHLORIDE
Strength: 25MG
Dosage Form/Route: TABLET;ORAL
Application: A201451 | Product #002 | TE Code: AA
Applicant: AMNEAL PHARMACEUTICALS OF NEW YORK LLC
Approved: Feb 23, 2011 | RLD: No | RS: Yes | Type: RX